FAERS Safety Report 7959304-8 (Version None)
Quarter: 2011Q4

REPORT INFORMATION
  Report Type: 
  Country: None (occurrence: None)
  Receive Date: 20111206
  Receipt Date: 20111201
  Transmission Date: 20120403
  Serious: No
  Sender: FDA-Public Use
  Company Number: US-TEVA-311985USA

PATIENT
  Sex: Female
  Weight: 54.48 kg

DRUGS (4)
  1. TRI-SPRINTEC [Concomitant]
     Indication: CONTRACEPTION
  2. XANAX [Concomitant]
     Indication: ANXIETY
  3. PLAN B ONE-STEP [Suspect]
     Indication: POST COITAL CONTRACEPTION
     Dosage: 1.5 MILLIGRAM;
     Route: 048
     Dates: start: 20111122, end: 20111122
  4. LEXAPRO [Concomitant]
     Indication: ANXIETY

REACTIONS (1)
  - MENSTRUATION IRREGULAR [None]
